FAERS Safety Report 7194464-0 (Version None)
Quarter: 2010Q4

REPORT INFORMATION
  Report Type: 
  Country: None (occurrence: None)
  Receive Date: 20101223
  Receipt Date: 20101214
  Transmission Date: 20110411
  Serious: Yes (Hospitalization, Other)
  Sender: FDA-Public Use
  Company Number: GB-ASTRAZENECA-2010SE43131

PATIENT
  Age: 22135 Day
  Sex: Male
  Weight: 71 kg

DRUGS (11)
  1. OMEPRAZOLE [Suspect]
     Indication: PROPHYLAXIS AGAINST GASTROINTESTINAL ULCER
     Route: 048
  2. OMEPRAZOLE [Suspect]
     Indication: GASTROOESOPHAGEAL REFLUX DISEASE
     Route: 048
  3. HERBAL REMEDY [Suspect]
     Route: 048
  4. LOMUSTINE [Suspect]
     Indication: GLIOSARCOMA
     Route: 048
     Dates: start: 20100607
  5. LOMUSTINE [Suspect]
     Route: 048
     Dates: start: 20100721
  6. PROCARBAZINE HYDROCHLORIDE [Suspect]
     Indication: GLIOSARCOMA
     Route: 048
     Dates: start: 20100607
  7. PROCARBAZINE HYDROCHLORIDE [Suspect]
     Route: 048
     Dates: start: 20100721
  8. DEXAMETHASONE [Concomitant]
     Indication: GENERAL SYMPTOM
     Route: 048
  9. LACTULOSE [Concomitant]
     Indication: CONSTIPATION
     Route: 048
  10. VINCRISTINE [Concomitant]
     Indication: GLIOSARCOMA
     Route: 042
     Dates: start: 20100607
  11. VINCRISTINE [Concomitant]
     Route: 042
     Dates: start: 20100721

REACTIONS (3)
  - ALANINE AMINOTRANSFERASE INCREASED [None]
  - HEPATITIS [None]
  - JAUNDICE CHOLESTATIC [None]
